FAERS Safety Report 4958428-7 (Version None)
Quarter: 2006Q1

REPORT INFORMATION
  Report Type: 
  Country: None (occurrence: None)
  Receive Date: 20060330
  Receipt Date: 20060117
  Transmission Date: 20060701
  Serious: Yes (Other)
  Sender: FDA-Public Use
  Company Number: US-AMGEN-US165444

PATIENT
  Sex: Female

DRUGS (2)
  1. ENBREL [Suspect]
     Indication: PSORIASIS
     Route: 058
     Dates: start: 20050601, end: 20060110
  2. CORTICOSTEROIDS [Concomitant]
     Route: 061

REACTIONS (4)
  - DIABETES MELLITUS INSULIN-DEPENDENT [None]
  - DRUG EXPOSURE DURING PREGNANCY [None]
  - PLACENTAL CHORIOANGIOMA [None]
  - POLYHYDRAMNIOS [None]
